FAERS Safety Report 6039444-3 (Version None)
Quarter: 2009Q1

REPORT INFORMATION
  Report Type: 
  Country: None (occurrence: None)
  Receive Date: 20090114
  Receipt Date: 20081230
  Transmission Date: 20090719
  Serious: Yes (Hospitalization)
  Sender: FDA-Public Use
  Company Number: 1000003439

PATIENT
  Age: 65 Year
  Sex: Female

DRUGS (9)
  1. ESCITALOPRAM [Suspect]
     Dosage: 1 DOSAGE FORMS (1 DOSAGE FORMS, 1 IN 1 D), ORAL
     Route: 048
     Dates: start: 20081022, end: 20081030
  2. CELEBREX [Suspect]
     Dosage: 200 MG (200 MG, 1 IN 1 D), ORAL
     Route: 048
     Dates: end: 20081031
  3. COTAREG [Concomitant]
  4. MOPRAL [Concomitant]
  5. ESIDRIX [Concomitant]
  6. URBANYL [Concomitant]
  7. DAFALGAN [Concomitant]
  8. DI-ANTALVIC [Concomitant]
  9. MOTILIUM [Concomitant]

REACTIONS (6)
  - BLADDER DISTENSION [None]
  - CEREBROVASCULAR ACCIDENT [None]
  - COGNITIVE DISORDER [None]
  - DISORIENTATION [None]
  - HYPONATRAEMIA [None]
  - OEDEMA PERIPHERAL [None]
